FAERS Safety Report 15186935 (Version 2)
Quarter: 2019Q1

REPORT INFORMATION
  Report Type: Report from Study
  Country: US (occurrence: US)
  Receive Date: 20180723
  Receipt Date: 20190130
  Transmission Date: 20190417
  Serious: No
  Sender: FDA-Public Use
  Company Number: US-EXELIXIS-CABO-18011945

PATIENT
  Sex: Male

DRUGS (12)
  1. ULORIC [Concomitant]
     Active Substance: FEBUXOSTAT
  2. AUGMENTIN [Concomitant]
     Active Substance: AMOXICILLIN\CLAVULANATE POTASSIUM
  3. METOPROLOL TARTRATE. [Concomitant]
     Active Substance: METOPROLOL TARTRATE
  4. LEVOTHYROXINE. [Concomitant]
     Active Substance: LEVOTHYROXINE
  5. NYSTATIN. [Concomitant]
     Active Substance: NYSTATIN
  6. DOXAZOSINE [Concomitant]
     Active Substance: DOXAZOSIN MESYLATE
  7. JANUMET [Concomitant]
     Active Substance: METFORMIN HYDROCHLORIDE\SITAGLIPTIN PHOSPHATE
  8. CABOMETYX [Suspect]
     Active Substance: CABOZANTINIB S-MALATE
     Indication: RENAL CANCER
     Dosage: 60 MG, QD
     Route: 048
  9. BENZONATATE. [Concomitant]
     Active Substance: BENZONATATE
  10. MONTELUKAST [Concomitant]
     Active Substance: MONTELUKAST SODIUM
  11. ATORVASTATIN [Concomitant]
     Active Substance: ATORVASTATIN
  12. FUROSEMIDE. [Concomitant]
     Active Substance: FUROSEMIDE

REACTIONS (6)
  - Sinusitis [Recovered/Resolved]
  - Glossodynia [Unknown]
  - Cough [Unknown]
  - Pain in extremity [Unknown]
  - Skin exfoliation [Unknown]
  - Erythema [Unknown]
